FAERS Safety Report 6840121-7 (Version None)
Quarter: 2010Q3

REPORT INFORMATION
  Report Type: 
  Country: None (occurrence: None)
  Receive Date: 20100714
  Receipt Date: 20100704
  Transmission Date: 20110219
  Serious: Yes (Death, Other)
  Sender: FDA-Public Use
  Company Number: CA-JNJFOC-20100703062

PATIENT
  Age: 81 Year
  Sex: Male

DRUGS (6)
  1. HALOPERIDOL [Suspect]
     Indication: AGGRESSION
     Dosage: 9 DAYS
     Route: 048
  2. HALOPERIDOL [Suspect]
     Indication: AGITATION
     Dosage: 9 DAYS
     Route: 048
  3. HALOPERIDOL [Suspect]
     Indication: CONFUSIONAL STATE
     Dosage: 9 DAYS
     Route: 048
  4. HALOPERIDOL DECANOATE [Suspect]
     Indication: AGGRESSION
     Route: 030
  5. HALOPERIDOL DECANOATE [Suspect]
     Indication: AGITATION
     Route: 030
  6. HALOPERIDOL DECANOATE [Suspect]
     Indication: CONFUSIONAL STATE
     Route: 030

REACTIONS (2)
  - DEATH [None]
  - NEUROLEPTIC MALIGNANT SYNDROME [None]
